FAERS Safety Report 12297471 (Version 2)
Quarter: 2016Q2

REPORT INFORMATION
  Report Type: Report from Study
  Country: US (occurrence: US)
  Receive Date: 20160422
  Receipt Date: 20160425
  Transmission Date: 20160815
  Serious: No
  Sender: FDA-Public Use
  Company Number: US-MDT-ADR-2015-02356

PATIENT
  Age: 43 Year
  Sex: Female

DRUGS (6)
  1. MORPHINE SULFATE IR [Suspect]
     Active Substance: MORPHINE SULFATE
  2. COMPOUNDED BACLOFEN [Suspect]
     Active Substance: BACLOFEN
     Dosage: 133.48MCG/DAY
     Route: 037
  3. DILAUDID [Suspect]
     Active Substance: HYDROMORPHONE HYDROCHLORIDE
     Dosage: 1.6018MG/DAY
     Route: 037
  4. CLONIDINE. [Suspect]
     Active Substance: CLONIDINE
     Dosage: 74.75MCG/DAY
     Route: 037
  5. BUPIVACAINE. [Suspect]
     Active Substance: BUPIVACAINE
     Dosage: 7.475MG/DAY
     Route: 037
  6. MORPHINE SULFATE ER [Suspect]
     Active Substance: MORPHINE SULFATE

REACTIONS (4)
  - Overdose [Recovered/Resolved]
  - Grip strength decreased [Recovered/Resolved]
  - Adverse drug reaction [Recovered/Resolved]
  - Device infusion issue [None]
